FAERS Safety Report 6526088-X (Version None)
Quarter: 2009Q4

REPORT INFORMATION
  Report Type: 
  Country: None (occurrence: None)
  Receive Date: 20091222
  Receipt Date: 20091208
  Transmission Date: 20100525
  Serious: Yes (Other)
  Sender: FDA-Public Use
  Company Number: DSJ-2009-16426

PATIENT
  Age: 87 Year
  Sex: Female

DRUGS (8)
  1. OLMESARTAN MEDOXOMIL [Suspect]
     Indication: HYPERTENSION
     Dosage: 20 MG (20 MG, 1 IN 1 D), PER ORAL, 40 MG (20 MG, 2 IN 1 D), PER ORAL
     Route: 048
     Dates: start: 20071207, end: 20090601
  2. OLMESARTAN MEDOXOMIL [Suspect]
     Indication: HYPERTENSION
     Dosage: 20 MG (20 MG, 1 IN 1 D), PER ORAL, 40 MG (20 MG, 2 IN 1 D), PER ORAL
     Route: 048
     Dates: start: 20090601, end: 20090728
  3. NORVASC [Suspect]
     Indication: HYPERTENSION
     Dates: start: 20071207, end: 20090626
  4. CARDENALIN (DOXAZOSIN MESILATE) (DOXAZOSIN MESILATE) [Suspect]
     Dosage: 4 MG (2 MG, 2 IN 1 D), 2 MG (2 MG, 1 IN 1 D)
     Dates: start: 19990111, end: 20071206
  5. CARDENALIN (DOXAZOSIN MESILATE) (DOXAZOSIN MESILATE) [Suspect]
     Dosage: 4 MG (2 MG, 2 IN 1 D), 2 MG (2 MG, 1 IN 1 D)
     Dates: start: 20071207, end: 20090626
  6. RENIVACE (ENALAPRIL MALEATE) (ENALAPRIL MALEATE) [Concomitant]
  7. DEPAS (ETIZOLAM) (ETIZOLAM) [Concomitant]
  8. CALSLOT (MANIDIPINE HYDROCHLORIDE) (MANIDIPINE HYDROCHLORIDE) [Concomitant]

REACTIONS (1)
  - PLATELET COUNT DECREASED [None]
